FAERS Safety Report 17576676 (Version 4)
Quarter: 2020Q2

REPORT INFORMATION
  Report Type: Spontaneous
  Country: NO (occurrence: NO)
  Receive Date: 20200324
  Receipt Date: 20200422
  Transmission Date: 20200713
  Serious: Yes (Hospitalization, Other)
  Sender: FDA-Public Use
  Company Number: NO-SA-2020SA072920

PATIENT
  Age: 30 Year
  Sex: Male

DRUGS (2)
  1. LEMTRADA [Suspect]
     Active Substance: ALEMTUZUMAB
     Dosage: 12 MG/1.2 ML
     Route: 042
     Dates: start: 201902
  2. LEMTRADA [Suspect]
     Active Substance: ALEMTUZUMAB
     Indication: RELAPSING-REMITTING MULTIPLE SCLEROSIS
     Dosage: 12MG/1.2 ML
     Route: 042
     Dates: start: 201802

REACTIONS (1)
  - Encephalitis autoimmune [Recovering/Resolving]

NARRATIVE: CASE EVENT DATE: 20200131
